FAERS Safety Report 8599631 (Version 5)
Quarter: 2013Q1

REPORT INFORMATION
  Report Type: Report from Study
  Country: US (occurrence: US)
  Receive Date: 20120605
  Receipt Date: 20130213
  Transmission Date: 20140127
  Serious: Yes (Other)
  Sender: FDA-Public Use
  Company Number: US-ABBOTT-12P-163-0940381-00

PATIENT
  Age: 50 Year
  Sex: Female
  Weight: 52.21 kg

DRUGS (15)
  1. HUMIRA 40 MG/0.8 ML PEN [Suspect]
     Indication: CROHN^S DISEASE
     Dosage: 160 MG LOADING DOSE
     Dates: start: 20120522, end: 20120522
  2. HUMIRA 40 MG/0.8 ML PEN [Suspect]
  3. NAPROXEN [Concomitant]
     Indication: HEADACHE
     Route: 048
  4. TOPAMAX [Concomitant]
     Indication: CONVULSION
     Route: 048
  5. LAMOTRIGINE [Concomitant]
     Indication: CONVULSION
     Route: 048
  6. ENTOCORT [Concomitant]
     Indication: PRODUCT USED FOR UNKNOWN INDICATION
  7. BUDESONIDE [Concomitant]
     Indication: UNDERWEIGHT
     Dosage: 3 MG DAILY
     Route: 048
  8. PAXIL [Concomitant]
     Indication: ANXIETY
     Route: 048
  9. COLESTIPOL [Concomitant]
     Indication: UNDERWEIGHT
     Route: 048
  10. XANAX [Concomitant]
     Indication: ANXIETY
     Dosage: ^GO TO PILL^ AS NEEDED
     Route: 048
  11. BELLADONNA-PHENOBARBITAL [Concomitant]
     Indication: CONVULSION
     Dosage: 4 TIMES A DAY AS NEEDED
     Route: 048
  12. BALSALAZIDE [Concomitant]
     Indication: UNDERWEIGHT
     Route: 048
  13. ANTI-DIARRHEA PILL [Concomitant]
     Indication: DIARRHOEA
     Route: 048
  14. HYDROXYZINE [Concomitant]
     Indication: PRURITUS
     Route: 048
  15. TEMAZEPAM [Concomitant]
     Indication: INSOMNIA
     Dosage: AT BEDTIME
     Route: 048

REACTIONS (11)
  - Convulsion [Recovered/Resolved]
  - Feeling hot [Unknown]
  - Chills [Unknown]
  - Vomiting [Unknown]
  - Myalgia [Unknown]
  - Rash [Not Recovered/Not Resolved]
  - Drug ineffective [Unknown]
  - Diarrhoea [Unknown]
  - Weight decreased [Unknown]
  - Injection site haemorrhage [Unknown]
  - Pulmonary mass [Unknown]
